FAERS Safety Report 8797825 (Version 1)
Quarter: 2012Q4

REPORT INFORMATION
  Report Type: 
  Country: AR (occurrence: AR)
  Receive Date: 20120920
  Receipt Date: 20120920
  Transmission Date: 20130627
  Serious: Yes (Hospitalization)
  Sender: FDA-Public Use
  Company Number: AR-SANOFI-AVENTIS-2012SA059390

PATIENT
  Age: 22 Year
  Sex: Female

DRUGS (1)
  1. APIDRA [Suspect]
     Indication: DIABETES
     Dosage: stop date: at 8th week of pregnancy (1 month ago) Dose:70 unit(s)
     Route: 058

REACTIONS (2)
  - Foetal death [Unknown]
  - Exposure during pregnancy [Unknown]
